FAERS Safety Report 4844844-0 (Version None)
Quarter: 2005Q4

REPORT INFORMATION
  Report Type: 
  Country: None (occurrence: None)
  Receive Date: 20051201
  Receipt Date: 20051201
  Transmission Date: 20060501
  Serious: Yes (Other)
  Sender: FDA-Public Use
  Company Number: None

PATIENT
  Sex: Female

DRUGS (1)
  1. ZIAC [Suspect]
     Indication: HYPERTENSION
     Dosage: TAKE 1 TABLET IN THE MORNING AND 1 + 1/2 TABLETS IN THE EVENING
     Dates: start: 20051112, end: 20051126

REACTIONS (3)
  - HYPOAESTHESIA [None]
  - PARAESTHESIA [None]
  - THERAPEUTIC RESPONSE UNEXPECTED WITH DRUG SUBSTITUTION [None]
